FAERS Safety Report 16326896 (Version 1)
Quarter: 2019Q2

REPORT INFORMATION
  Report Type: Spontaneous
  Country: FR (occurrence: FR)
  Receive Date: 20190517
  Receipt Date: 20190517
  Transmission Date: 20190711
  Serious: Yes (Hospitalization)
  Sender: FDA-Public Use
  Company Number: FR-MYLANLABS-2019M1046195

PATIENT
  Age: 51 Year
  Sex: Female
  Weight: 60 kg

DRUGS (8)
  1. SERESTA [Suspect]
     Active Substance: OXAZEPAM
     Indication: PRODUCT USED FOR UNKNOWN INDICATION
     Dosage: 0.5 DOSAGE FORM, QD
     Route: 048
     Dates: start: 20180913, end: 20180917
  2. ALIMTA [Suspect]
     Active Substance: PEMETREXED DISODIUM
     Indication: LUNG NEOPLASM MALIGNANT
     Dosage: 845 MILLIGRAM
     Route: 042
     Dates: start: 20180911, end: 20180911
  3. DOLIPRANE [Suspect]
     Active Substance: ACETAMINOPHEN
     Indication: PAIN
     Dosage: UNK
     Route: 048
     Dates: start: 201808, end: 20180919
  4. PYOSTACINE [Suspect]
     Active Substance: PRISTINAMYCIN
     Indication: INFECTION
     Dosage: 3000 MILLIGRAM, QD
     Route: 048
     Dates: start: 20180831, end: 20180906
  5. MORPHINE [Suspect]
     Active Substance: MORPHINE
     Indication: PRODUCT USED FOR UNKNOWN INDICATION
     Dosage: UNK
     Route: 041
     Dates: start: 20180906, end: 20180920
  6. CARBOPLATIN. [Suspect]
     Active Substance: CARBOPLATIN
     Indication: LUNG NEOPLASM MALIGNANT
     Dosage: 590 MILLIGRAM
     Route: 042
     Dates: start: 20180911, end: 20180911
  7. PYOSTACINE [Suspect]
     Active Substance: PRISTINAMYCIN
     Dosage: 3000 MILLIGRAM, QD
     Route: 048
     Dates: start: 20180914, end: 20180920
  8. METHYLPREDNISOLONE MYLAN [Suspect]
     Active Substance: METHYLPREDNISOLONE
     Indication: PRODUCT USED FOR UNKNOWN INDICATION
     Dosage: 40 MILLIGRAM, QD
     Route: 042
     Dates: start: 20180907, end: 20180921

REACTIONS (2)
  - Hepatocellular injury [Recovering/Resolving]
  - Acute hepatic failure [Recovered/Resolved]

NARRATIVE: CASE EVENT DATE: 20180919
